FAERS Safety Report 8204632-4 (Version None)
Quarter: 2012Q1

REPORT INFORMATION
  Report Type: 
  Country: None (occurrence: None)
  Receive Date: 20120313
  Receipt Date: 20120229
  Transmission Date: 20120608
  Serious: Yes (Hospitalization)
  Sender: FDA-Public Use
  Company Number: DE-ELI_LILLY_AND_COMPANY-DE201202008253

PATIENT
  Sex: Male

DRUGS (4)
  1. FORTEO [Suspect]
     Indication: OSTEOPOROSIS
     Dosage: UNK, QD
     Route: 058
     Dates: start: 20100629, end: 20120101
  2. BUDESONIDE [Concomitant]
  3. TILIDIN [Concomitant]
     Dosage: UNK, PRN
  4. MAGNESIUM [Concomitant]

REACTIONS (2)
  - PROSTATIC OPERATION [None]
  - BLADDER OPERATION [None]
